FAERS Safety Report 6633891-4 (Version None)
Quarter: 2010Q1

REPORT INFORMATION
  Report Type: 
  Country: None (occurrence: None)
  Receive Date: 20100315
  Receipt Date: 20100305
  Transmission Date: 20100710
  Serious: Yes (Hospitalization, Other)
  Sender: FDA-Public Use
  Company Number: TR-ELI_LILLY_AND_COMPANY-TR201002004863

PATIENT
  Age: 63 Year
  Sex: Male

DRUGS (4)
  1. HUMALOG MIX 75/25 [Suspect]
     Dosage: 20 IU, 3/D
     Route: 058
     Dates: start: 20100203, end: 20100201
  2. HUMALOG [Suspect]
     Dosage: 24 IU, 3/D
     Dates: start: 20100220
  3. LANTUS [Concomitant]
     Dosage: UNK, DAILY (1/D)
     Route: 058
     Dates: start: 20100203, end: 20100201
  4. LANTUS [Concomitant]
     Dosage: 34 IU, DAILY (1/D)
     Dates: start: 20100220

REACTIONS (4)
  - CARDIAC FAILURE [None]
  - CORONARY ARTERY DISEASE [None]
  - DIABETES MELLITUS [None]
  - OEDEMA PERIPHERAL [None]
